FAERS Safety Report 17156093 (Version 1)
Quarter: 2019Q4

REPORT INFORMATION
  Report Type: Spontaneous
  Country: US (occurrence: US)
  Receive Date: 20191216
  Receipt Date: 20191216
  Transmission Date: 20200122
  Serious: No
  Sender: FDA-Public Use
  Company Number: NVSC2019US016548

PATIENT
  Age: 17 Year
  Sex: Female

DRUGS (8)
  1. OMALIZUMAB. [Suspect]
     Active Substance: OMALIZUMAB
     Indication: URTICARIA
  2. DAPSONE. [Suspect]
     Active Substance: DAPSONE
     Indication: LIP SWELLING
     Dosage: UNK UKN, UNKNOWN
     Route: 065
  3. HYDROXYCHLOROQUINE [Suspect]
     Active Substance: HYDROXYCHLOROQUINE
     Indication: URTICARIA
  4. CYCLOSPORINE. [Suspect]
     Active Substance: CYCLOSPORINE
     Indication: LIP SWELLING
     Dosage: UNK UKN, UNKNOWN
     Route: 065
  5. OMALIZUMAB. [Suspect]
     Active Substance: OMALIZUMAB
     Indication: LIP SWELLING
     Dosage: UNK UKN, UNKNOWN
     Route: 065
  6. CYCLOSPORINE. [Suspect]
     Active Substance: CYCLOSPORINE
     Indication: URTICARIA
  7. DAPSONE. [Suspect]
     Active Substance: DAPSONE
     Indication: URTICARIA
  8. HYDROXYCHLOROQUINE [Suspect]
     Active Substance: HYDROXYCHLOROQUINE
     Indication: LIP SWELLING
     Dosage: UNK UKN, UNKNOWN
     Route: 065

REACTIONS (1)
  - Drug ineffective [Unknown]
